FAERS Safety Report 13960902 (Version 1)
Quarter: 2017Q3

REPORT INFORMATION
  Report Type: Spontaneous
  Country: IT (occurrence: IT)
  Receive Date: 20170912
  Receipt Date: 20170912
  Transmission Date: 20171128
  Serious: Yes (Other)
  Sender: FDA-Public Use
  Company Number: IT-ABBVIE-17P-083-2096565-00

PATIENT
  Sex: Female
  Weight: 49 kg

DRUGS (2)
  1. EXVIERA [Suspect]
     Active Substance: DASABUVIR
     Indication: PRODUCT USED FOR UNKNOWN INDICATION
     Route: 048
  2. VIEKIRAX [Suspect]
     Active Substance: OMBITASVIR\PARITAPREVIR\RITONAVIR
     Indication: HEPATITIS C
     Dosage: 13.7 MG AS NEEDED
     Route: 048
     Dates: start: 20170804

REACTIONS (11)
  - Depression [Not Recovered/Not Resolved]
  - Cough [Not Recovered/Not Resolved]
  - Migraine [Not Recovered/Not Resolved]
  - Nausea [Not Recovered/Not Resolved]
  - Gastrointestinal disorder [Not Recovered/Not Resolved]
  - Pruritus [Not Recovered/Not Resolved]
  - Tongue blistering [Not Recovered/Not Resolved]
  - Dyspnoea [Not Recovered/Not Resolved]
  - Gastric disorder [Not Recovered/Not Resolved]
  - Insomnia [Not Recovered/Not Resolved]
  - Fatigue [Not Recovered/Not Resolved]
